FAERS Safety Report 24934921 (Version 2)
Quarter: 2025Q1

REPORT INFORMATION
  Report Type: Spontaneous
  Country: CN (occurrence: CN)
  Receive Date: 20250206
  Receipt Date: 20250218
  Transmission Date: 20250409
  Serious: Yes (Death, Life-Threatening, Hospitalization, Other)
  Sender: ALKEM
  Company Number: None

PATIENT
  Age: 16 Month
  Sex: Male

DRUGS (2)
  1. MYCOPHENOLATE MOFETIL [Suspect]
     Active Substance: MYCOPHENOLATE MOFETIL
     Indication: Immunosuppressant drug therapy
     Dosage: 125 MILLIGRAM, BID (2/24 HOURS) (DISPERSED TABLET)
     Route: 065
  2. TACROLIMUS [Suspect]
     Active Substance: TACROLIMUS
     Indication: Immunosuppressant drug therapy
     Dosage: 6 MILLIGRAM, TID (3/24 HOURS) (CAPSULES)
     Route: 065

REACTIONS (7)
  - Diffuse large B-cell lymphoma [Fatal]
  - Respiratory failure [Fatal]
  - Intestinal perforation [Fatal]
  - Ascites [Fatal]
  - Epstein-Barr virus associated lymphoproliferative disorder [Fatal]
  - Pneumonia viral [Fatal]
  - Septic shock [Fatal]
